FAERS Safety Report 8541976-0 (Version None)
Quarter: 2012Q3

REPORT INFORMATION
  Report Type: 
  Country: None (occurrence: None)
  Receive Date: 20120726
  Receipt Date: 20111003
  Transmission Date: 20120928
  Serious: No
  Sender: FDA-Public Use
  Company Number: US-ASTRAZENECA-2011SE59174

PATIENT
  Age: 48 Year
  Sex: Female
  Weight: 93 kg

DRUGS (8)
  1. ADVAIR DISKUS 100/50 [Concomitant]
     Indication: CHRONIC OBSTRUCTIVE PULMONARY DISEASE
     Dosage: 250/50
     Dates: start: 20070101
  2. SEROQUEL [Suspect]
     Route: 048
  3. SEROQUEL [Suspect]
     Indication: ANXIETY
     Route: 048
     Dates: start: 20100101
  4. NEBULIZER TREATMENT [Concomitant]
     Indication: CHRONIC OBSTRUCTIVE PULMONARY DISEASE
     Dates: start: 20070101
  5. SEROQUEL [Suspect]
     Indication: DEPRESSION
     Route: 048
     Dates: start: 20100101
  6. SEROQUEL [Suspect]
     Route: 048
  7. DEXILAMP [Concomitant]
     Indication: BARRETT'S OESOPHAGUS
     Dates: start: 20100101
  8. PRO AIR RESCUE INHALER [Concomitant]
     Indication: CHRONIC OBSTRUCTIVE PULMONARY DISEASE
     Dates: start: 20070101

REACTIONS (4)
  - INSOMNIA [None]
  - DRUG EFFECT DECREASED [None]
  - OFF LABEL USE [None]
  - ANXIETY [None]
